FAERS Safety Report 21532336 (Version 1)
Quarter: 2022Q4

REPORT INFORMATION
  Report Type: Spontaneous
  Country: US (occurrence: US)
  Receive Date: 20221101
  Receipt Date: 20221101
  Transmission Date: 20230112
  Serious: Yes (Life-Threatening, Other)
  Sender: FDA-Public Use
  Company Number: None

PATIENT
  Age: 22 Year
  Sex: Female

DRUGS (8)
  1. LIDOCAINE HYDROCHLORIDE [Suspect]
     Active Substance: LIDOCAINE HYDROCHLORIDE
     Indication: Oesophagogastroduodenoscopy
  2. LIDOCAINE HYDROCHLORIDE [Suspect]
     Active Substance: LIDOCAINE HYDROCHLORIDE
     Indication: Colonoscopy
  3. MIDAZOLAM [Concomitant]
     Active Substance: MIDAZOLAM
     Indication: Oesophagogastroduodenoscopy
  4. MIDAZOLAM [Concomitant]
     Active Substance: MIDAZOLAM
     Indication: Colonoscopy
  5. PROPOFOL [Concomitant]
     Active Substance: PROPOFOL
     Indication: Oesophagogastroduodenoscopy
  6. PROPOFOL [Concomitant]
     Active Substance: PROPOFOL
     Indication: Colonoscopy
  7. ONDANSETRON [Concomitant]
     Active Substance: ONDANSETRON
     Indication: Oesophagogastroduodenoscopy
  8. ONDANSETRON [Concomitant]
     Active Substance: ONDANSETRON
     Indication: Colonoscopy

REACTIONS (1)
  - Anaesthetic complication neurological [Recovered/Resolved]
